FAERS Safety Report 16856465 (Version 1)
Quarter: 2019Q3

REPORT INFORMATION
  Report Type: Spontaneous
  Country: FR (occurrence: FR)
  Receive Date: 20190926
  Receipt Date: 20190926
  Transmission Date: 20191005
  Serious: Yes (Hospitalization, Other)
  Sender: FDA-Public Use
  Company Number: FR-009507513-1909FRA007183

PATIENT
  Age: 84 Year
  Sex: Male

DRUGS (2)
  1. SINEMET [Suspect]
     Active Substance: CARBIDOPA\LEVODOPA
     Dosage: 4 TABLETS PER DAY IN TOTAL/ 2 TABLETS IN THE MORNING AND 2 TABLETS IN THE EVENING
     Route: 048
     Dates: start: 20190916
  2. SINEMET [Suspect]
     Active Substance: CARBIDOPA\LEVODOPA
     Indication: PARKINSON^S DISEASE
     Dosage: 2 TABLETS IN THE MORNING, 2 TABLETS IN THE EVENING AND 1 TABLET BEFORE BEDTIME
     Route: 048

REACTIONS (6)
  - Mental disorder [Unknown]
  - Abnormal behaviour [Unknown]
  - Supranuclear palsy [Unknown]
  - Memory impairment [Unknown]
  - Aggression [Unknown]
  - Intentional product use issue [Unknown]

NARRATIVE: CASE EVENT DATE: 20190916
